FAERS Safety Report 17550701 (Version 2)
Quarter: 2022Q4

REPORT INFORMATION
  Report Type: Spontaneous
  Country: DE (occurrence: DE)
  Receive Date: 20200317
  Receipt Date: 20221020
  Transmission Date: 20230112
  Serious: Yes (Hospitalization)
  Sender: FDA-Public Use
  Company Number: DE-ADRED-04458-01

PATIENT
  Age: 71 Year
  Sex: Female
  Weight: 69 kg

DRUGS (9)
  1. TELMISARTAN [Suspect]
     Active Substance: TELMISARTAN
     Indication: Product used for unknown indication
     Route: 048
  2. SPIRONOLACTONE [Suspect]
     Active Substance: SPIRONOLACTONE
     Indication: Product used for unknown indication
     Route: 048
  3. TORSEMIDE [Suspect]
     Active Substance: TORSEMIDE
     Indication: Product used for unknown indication
     Route: 048
  4. EDOXABAN [Suspect]
     Active Substance: EDOXABAN
     Indication: Product used for unknown indication
     Route: 048
  5. ALLOPURINOL [Suspect]
     Active Substance: ALLOPURINOL
     Indication: Product used for unknown indication
     Route: 048
  6. MOXIFLOXACIN [Suspect]
     Active Substance: MOXIFLOXACIN
     Indication: Product used for unknown indication
     Route: 048
  7. SIMVASTATIN [Suspect]
     Active Substance: SIMVASTATIN
     Indication: Product used for unknown indication
     Route: 048
  8. VERAPAMIL [Suspect]
     Active Substance: VERAPAMIL HYDROCHLORIDE
     Indication: Product used for unknown indication
     Route: 048
  9. Cyanocobalamin (Vitamin B12) [Concomitant]
     Indication: Product used for unknown indication
     Route: 048

REACTIONS (12)
  - Cough [Unknown]
  - Pericardial effusion [Unknown]
  - Chest pain [Unknown]
  - Dyspnoea [Unknown]
  - Product used for unknown indication [Unknown]
  - Electrolyte imbalance [Unknown]
  - Labelled drug-drug interaction medication error [Unknown]
  - Localised infection [Unknown]
  - Hyperthyroidism [Unknown]
  - Renal impairment [Unknown]
  - Fall [Unknown]
  - Product monitoring error [Unknown]
